FAERS Safety Report 5363494-3 (Version None)
Quarter: 2007Q2

REPORT INFORMATION
  Report Type: 
  Country: None (occurrence: None)
  Receive Date: 20070620
  Receipt Date: 20070614
  Transmission Date: 20071010
  Serious: Yes (Other)
  Sender: FDA-Public Use
  Company Number: US-GENENTECH-241091

PATIENT
  Age: 80 Year
  Sex: Female

DRUGS (5)
  1. RITUXAN [Suspect]
     Indication: B-CELL LYMPHOMA
     Dosage: 600 MG, UNK
     Route: 042
     Dates: start: 20051101, end: 20060101
  2. CYCLOPHOSPHAMIDE [Concomitant]
     Indication: B-CELL LYMPHOMA
  3. DOXORUBICIN HCL [Concomitant]
     Indication: B-CELL LYMPHOMA
  4. VINCRISTINE [Concomitant]
     Indication: B-CELL LYMPHOMA
  5. PREDNISONE TAB [Concomitant]
     Indication: B-CELL LYMPHOMA

REACTIONS (1)
  - SKIN CANCER [None]
